FAERS Safety Report 12929308 (Version 1)
Quarter: 2016Q4

REPORT INFORMATION
  Report Type: Spontaneous
  Country: IT (occurrence: IT)
  Receive Date: 20161110
  Receipt Date: 20161110
  Transmission Date: 20170207
  Serious: Yes (Other)
  Sender: FDA-Public Use
  Company Number: IT-TEVA-710440ACC

PATIENT
  Age: 61 Year
  Sex: Male

DRUGS (3)
  1. FLUOROURACILE TEVA - 500 MG/10 ML SOLUZIONE PER INFUSIONE - TEVA ITALI [Suspect]
     Active Substance: FLUOROURACIL
     Indication: COLON CANCER
     Dosage: CYCLICAL
     Route: 042
     Dates: start: 20151209, end: 20161020
  2. OXALIPLATINO SUN - 5MG/ML CONCENTRATO PER SOLUZIONE PER INFUSIONE [Suspect]
     Active Substance: OXALIPLATIN
     Indication: COLON CANCER
     Dosage: CYCLICAL
     Route: 042
     Dates: start: 20151209, end: 20160220
  3. AVASTIN - 400 MG CONCENTRATO PER SOLUZIONE PER INFUSIONE [Suspect]
     Active Substance: BEVACIZUMAB
     Indication: COLON CANCER
     Dosage: 300 MG CYCLICAL
     Route: 042
     Dates: start: 20151209, end: 20160220

REACTIONS (1)
  - Gastrointestinal haemorrhage [Recovered/Resolved]

NARRATIVE: CASE EVENT DATE: 20160220
